FAERS Safety Report 21168151 (Version 1)
Quarter: 2022Q3

REPORT INFORMATION
  Report Type: Spontaneous
  Country: US (occurrence: None)
  Receive Date: 20220803
  Receipt Date: 20220803
  Transmission Date: 20221027
  Serious: Yes (Other)
  Sender: FDA-Public Use
  Company Number: None

PATIENT
  Age: 78 Year
  Sex: Male
  Weight: 60.75 kg

DRUGS (9)
  1. ZOLPIDEM TARTRATE [Suspect]
     Active Substance: ZOLPIDEM TARTRATE
     Indication: Sleep disorder
     Dosage: OTHER QUANTITY : 30 TABLET(S);?FREQUENCY : AT BEDTIME;?
     Route: 048
     Dates: start: 20220712, end: 20220802
  2. testosterone cypionate (60 at .3 injected bi-weekly) [Concomitant]
  3. daily levothyrox- 62.5 [Concomitant]
  4. daily myrbetriq until one week ago [Concomitant]
  5. liquid d3-k2 [Concomitant]
  6. liquid b12 [Concomitant]
  7. LEVOMEFOLATE CALCIUM [Concomitant]
     Active Substance: LEVOMEFOLATE CALCIUM
  8. MAGNESIUM [Concomitant]
     Active Substance: MAGNESIUM
  9. PROBIOTICS NOS [Concomitant]
     Active Substance: PROBIOTICS NOS

REACTIONS (2)
  - Nightmare [None]
  - Nightmare [None]

NARRATIVE: CASE EVENT DATE: 20220802
